FAERS Safety Report 16124659 (Version 2)
Quarter: 2019Q2

REPORT INFORMATION
  Report Type: Spontaneous
  Country: US (occurrence: US)
  Receive Date: 20190327
  Receipt Date: 20190401
  Transmission Date: 20190711
  Serious: Yes (Hospitalization)
  Sender: FDA-Public Use
  Company Number: US-SUNOVION-2019SUN001175

PATIENT
  Age: 28 Year
  Sex: Female

DRUGS (2)
  1. LATUDA [Suspect]
     Active Substance: LURASIDONE HYDROCHLORIDE
     Dosage: UNK
     Route: 048
  2. LATUDA [Suspect]
     Active Substance: LURASIDONE HYDROCHLORIDE
     Dosage: UNK
     Route: 048
     Dates: end: 201805

REACTIONS (4)
  - Restlessness [Unknown]
  - Maternal exposure during pregnancy [Unknown]
  - Poor quality sleep [Unknown]
  - Depression [Unknown]

NARRATIVE: CASE EVENT DATE: 201805
